FAERS Safety Report 6690755-8 (Version None)
Quarter: 2010Q2

REPORT INFORMATION
  Report Type: 
  Country: None (occurrence: None)
  Receive Date: 20100421
  Receipt Date: 20100409
  Transmission Date: 20101027
  Serious: Yes (Other)
  Sender: FDA-Public Use
  Company Number: US-PFIZER INC-2009295877

PATIENT
  Sex: Female
  Weight: 60.317 kg

DRUGS (5)
  1. SUTENT [Suspect]
     Indication: METASTATIC RENAL CELL CARCINOMA
     Dosage: 50 MG, 1X/DAY FOR 4 WEEKS EVERY 6 WEEKS
     Route: 048
     Dates: start: 20090930, end: 20091221
  2. NEXIUM [Concomitant]
     Indication: ABDOMINAL DISCOMFORT
     Dosage: UNK
  3. PROMETHAZINE [Concomitant]
     Indication: NAUSEA
     Dosage: UNK
  4. TRAMADOL [Concomitant]
     Indication: PAIN
     Dosage: UNK
  5. COLESTYRAMINE [Concomitant]
     Dosage: UNK

REACTIONS (7)
  - BACK PAIN [None]
  - DIARRHOEA [None]
  - HEADACHE [None]
  - KIDNEY INFECTION [None]
  - PALMAR-PLANTAR ERYTHRODYSAESTHESIA SYNDROME [None]
  - SWOLLEN TONGUE [None]
  - TREMOR [None]
